FAERS Safety Report 8404795-1 (Version None)
Quarter: 2012Q2

REPORT INFORMATION
  Report Type: 
  Country: None (occurrence: None)
  Receive Date: 20120601
  Receipt Date: 20120524
  Transmission Date: 20120825
  Serious: Yes (Hospitalization, Disabling, Other)
  Sender: FDA-Public Use
  Company Number: US-MERCK-1203USA03332

PATIENT
  Age: 70 Year
  Sex: Female
  Weight: 59 kg

DRUGS (4)
  1. ALENDRONATE SODIUM [Suspect]
     Indication: OSTEOPOROSIS
     Route: 048
     Dates: start: 20020101, end: 20080201
  2. FOSAMAX [Suspect]
     Indication: OSTEOPENIA
     Route: 048
     Dates: start: 20020101, end: 20080301
  3. ALENDRONATE SODIUM [Suspect]
     Indication: OSTEOPENIA
     Route: 048
     Dates: start: 20020101, end: 20080201
  4. FOSAMAX [Suspect]
     Indication: OSTEOPOROSIS
     Route: 048
     Dates: start: 20020101, end: 20080301

REACTIONS (31)
  - POST PROCEDURAL HAEMORRHAGE [None]
  - HYPERTENSION [None]
  - GASTROOESOPHAGEAL REFLUX DISEASE [None]
  - BONE DISORDER [None]
  - PSEUDARTHROSIS [None]
  - ADVERSE EVENT [None]
  - BLOOD GLUCOSE ABNORMAL [None]
  - FULL BLOOD COUNT ABNORMAL [None]
  - CHRONIC OBSTRUCTIVE PULMONARY DISEASE [None]
  - CATARACT [None]
  - ARTHROPATHY [None]
  - MACULAR DEGENERATION [None]
  - BLINDNESS UNILATERAL [None]
  - LUNG NEOPLASM [None]
  - URINARY TRACT INFECTION [None]
  - HYPOTHYROIDISM [None]
  - BURSITIS [None]
  - ATRIAL FIBRILLATION [None]
  - OSTEOMYELITIS [None]
  - STRESS FRACTURE [None]
  - OSTEOPOROSIS [None]
  - MULTIPLE FRACTURES [None]
  - OSTEOARTHRITIS [None]
  - BENIGN LUNG NEOPLASM [None]
  - ASTHMA [None]
  - BONE DENSITY DECREASED [None]
  - FEMUR FRACTURE [None]
  - PULMONARY EMBOLISM [None]
  - WRONG DEVICE DISPENSED [None]
  - BODY TEMPERATURE INCREASED [None]
  - ARTERIOSCLEROTIC RETINOPATHY [None]
